FAERS Safety Report 23824972 (Version 2)
Quarter: 2024Q2

REPORT INFORMATION
  Report Type: Spontaneous
  Country: DE (occurrence: DE)
  Receive Date: 20240507
  Receipt Date: 20240510
  Transmission Date: 20240715
  Serious: Yes (Other)
  Sender: FDA-Public Use
  Company Number: DE-Ascend Therapeutics US, LLC-2156595

PATIENT
  Age: 52 Year
  Sex: Female
  Weight: 68 kg

DRUGS (8)
  1. ESTROGEL [Suspect]
     Active Substance: ESTRADIOL
     Indication: Hormone replacement therapy
     Route: 065
  2. ESTRADIOL HEMIHYDRATE [Suspect]
     Active Substance: ESTRADIOL HEMIHYDRATE
     Route: 065
  3. OMEGA 3 [Concomitant]
     Active Substance: CAPSAICIN
     Route: 065
  4. VITAMIN D NOS [Concomitant]
     Active Substance: CHOLECALCIFEROL\ERGOCALCIFEROL
     Route: 065
  5. ZINC [Concomitant]
     Active Substance: PYRITHIONE ZINC\ZINC\ZINC CHLORIDE
     Route: 065
  6. MAGNESIUM [Concomitant]
     Active Substance: MAGNESIUM
     Route: 065
  7. MANGANESE [Concomitant]
     Active Substance: MANGANESE CHLORIDE
     Route: 065
  8. ESTRADIOL HEMIHYDRATE [Suspect]
     Active Substance: ESTRADIOL HEMIHYDRATE
     Route: 065

REACTIONS (7)
  - Adrenal insufficiency [Unknown]
  - Weight decreased [Unknown]
  - Pollakiuria [Unknown]
  - Alopecia [Not Recovered/Not Resolved]
  - Fluid retention [Unknown]
  - Breast enlargement [Unknown]
  - Postmenopausal haemorrhage [Unknown]

NARRATIVE: CASE EVENT DATE: 20230101
